FAERS Safety Report 12096938 (Version 1)
Quarter: 2016Q1

REPORT INFORMATION
  Report Type: Spontaneous
  Country: ES (occurrence: ES)
  Receive Date: 20160221
  Receipt Date: 20160221
  Transmission Date: 20160526
  Serious: Yes (Other)
  Sender: FDA-Public Use
  Company Number: ES-ROXANE LABORATORIES, INC.-2016-RO-00304RO

PATIENT
  Age: 47 Year
  Sex: Male

DRUGS (1)
  1. PROPRANOLOL HCL ORAL SOLUTION, 20MG/5ML [Suspect]
     Active Substance: PROPRANOLOL HYDROCHLORIDE
     Indication: PSYCHOGENIC TREMOR
     Dosage: 40 MG
     Route: 065

REACTIONS (1)
  - Atrial fibrillation [Recovered/Resolved]
